FAERS Safety Report 23295578 (Version 1)
Quarter: 2023Q4

REPORT INFORMATION
  Report Type: Spontaneous
  Country: US (occurrence: US)
  Receive Date: 20231214
  Receipt Date: 20231214
  Transmission Date: 20240110
  Serious: No
  Sender: FDA-Public Use
  Company Number: US-ALVOGEN-2023092238

PATIENT
  Sex: Male

DRUGS (2)
  1. FENTANYL [Suspect]
     Active Substance: FENTANYL\FENTANYL CITRATE
     Indication: Squamous cell carcinoma
     Dosage: EXPIRATION DATE: APR-2026
  2. FENTANYL [Concomitant]
     Active Substance: FENTANYL\FENTANYL CITRATE
     Indication: Squamous cell carcinoma
     Dosage: EXPIRATION DATE: UU-MAY-2026

REACTIONS (3)
  - Device malfunction [Unknown]
  - Device adhesion issue [Unknown]
  - Off label use [Unknown]
